FAERS Safety Report 18969541 (Version 1)
Quarter: 2021Q1

REPORT INFORMATION
  Report Type: Spontaneous
  Country: IT (occurrence: IT)
  Receive Date: 20210304
  Receipt Date: 20210304
  Transmission Date: 20210420
  Serious: Yes (Death)
  Sender: FDA-Public Use
  Company Number: IT-SA-2021SA072485

PATIENT
  Age: 74 Year
  Sex: Male

DRUGS (1)
  1. ENOXAPARIN SODIUM. [Suspect]
     Active Substance: ENOXAPARIN SODIUM
     Dosage: 6000 KIU, QD
     Route: 059
     Dates: start: 20210202, end: 20210206

REACTIONS (2)
  - Asthenia [Fatal]
  - Abdominal mass [Fatal]

NARRATIVE: CASE EVENT DATE: 20210206
